FAERS Safety Report 12247721 (Version 1)
Quarter: 2016Q2

REPORT INFORMATION
  Report Type: Report from Study
  Country: DE (occurrence: DE)
  Receive Date: 20160408
  Receipt Date: 20160408
  Transmission Date: 20160815
  Serious: Yes (Hospitalization)
  Sender: FDA-Public Use
  Company Number: DE-ABBVIE-16K-062-1598659-00

PATIENT
  Age: 12 Year
  Sex: Female

DRUGS (4)
  1. HUMIRA [Suspect]
     Active Substance: ADALIMUMAB
     Indication: JUVENILE IDIOPATHIC ARTHRITIS
     Route: 058
     Dates: start: 20140222, end: 20151204
  2. FOLIC ACID. [Concomitant]
     Active Substance: FOLIC ACID
     Indication: PRODUCT USED FOR UNKNOWN INDICATION
  3. HUMIRA [Suspect]
     Active Substance: ADALIMUMAB
     Route: 058
     Dates: start: 20160205
  4. MTX [Concomitant]
     Active Substance: METHOTREXATE SODIUM
     Indication: PRODUCT USED FOR UNKNOWN INDICATION

REACTIONS (7)
  - Knee deformity [Recovered/Resolved]
  - Pain in extremity [Recovered/Resolved]
  - Blister [Recovered/Resolved]
  - Photosensitivity reaction [Recovered/Resolved]
  - Erythema [Recovered/Resolved]
  - Dermatitis allergic [Recovered/Resolved]
  - Paronychia [Recovered/Resolved]

NARRATIVE: CASE EVENT DATE: 20151204
